FAERS Safety Report 10305628 (Version 3)
Quarter: 2014Q3

REPORT INFORMATION
  Report Type: Spontaneous
  Country: US (occurrence: None)
  Receive Date: 20140711
  Receipt Date: 20140826
  Transmission Date: 20150326
  Serious: Yes (Hospitalization, Other)
  Sender: FDA-Public Use
  Company Number: ADR-2014-01192

PATIENT
  Age: 61 Year
  Sex: Female

DRUGS (4)
  1. CLONIDINE. [Suspect]
     Active Substance: CLONIDINE
     Route: 037
  2. MORPHINE [Suspect]
     Active Substance: MORPHINE
     Indication: PAIN
  3. CYMBALTA [Concomitant]
     Active Substance: DULOXETINE HYDROCHLORIDE
  4. BACLOFEN. [Suspect]
     Active Substance: BACLOFEN
     Indication: PAIN

REACTIONS (20)
  - Bacterial infection [None]
  - Panic attack [None]
  - Chest pain [None]
  - Tooth loss [None]
  - Treatment noncompliance [None]
  - Depression [None]
  - No therapeutic response [None]
  - Frustration [None]
  - Abasia [None]
  - Feeling cold [None]
  - Anxiety [None]
  - Activities of daily living impaired [None]
  - Influenza [None]
  - Cardiac disorder [None]
  - Pain [None]
  - Unevaluable event [None]
  - Cataract [None]
  - Implant site pain [None]
  - Walking aid user [None]
  - Wheelchair user [None]

NARRATIVE: CASE EVENT DATE: 20140401
